FAERS Safety Report 6056370-4 (Version None)
Quarter: 2009Q1

REPORT INFORMATION
  Report Type: 
  Country: None (occurrence: None)
  Receive Date: 20090129
  Receipt Date: 20090119
  Transmission Date: 20090719
  Serious: Yes (Hospitalization)
  Sender: FDA-Public Use
  Company Number: TR-WATSON-2009-00264

PATIENT
  Age: 42 Year
  Sex: Female

DRUGS (1)
  1. SULFASALAZINE [Suspect]
     Indication: RHEUMATOID ARTHRITIS
     Dosage: 2 G, DAILY

REACTIONS (4)
  - CENTRAL NERVOUS SYSTEM LESION [None]
  - CSF TEST ABNORMAL [None]
  - ENCEPHALOPATHY [None]
  - STATUS EPILEPTICUS [None]
